FAERS Safety Report 22299761 (Version 2)
Quarter: 2023Q2

REPORT INFORMATION
  Report Type: Spontaneous
  Country: RU (occurrence: RU)
  Receive Date: 20230509
  Receipt Date: 20230526
  Transmission Date: 20230721
  Serious: Yes (Other)
  Sender: FDA-Public Use
  Company Number: RU-TEVA-2023-RU-2885758

PATIENT
  Age: 37 Year
  Sex: Female

DRUGS (2)
  1. AJOVY [Suspect]
     Active Substance: FREMANEZUMAB-VFRM
     Indication: Product used for unknown indication
     Dosage: 150MG/ML
     Route: 058
     Dates: start: 20230314
  2. SUMATRIPTAN [Concomitant]
     Active Substance: SUMATRIPTAN
     Indication: Product used for unknown indication

REACTIONS (3)
  - Swollen tongue [Recovered/Resolved]
  - Dyspnoea [Recovered/Resolved]
  - Hypersensitivity [Unknown]

NARRATIVE: CASE EVENT DATE: 20230301
